FAERS Safety Report 13753449 (Version 2)
Quarter: 2017Q3

REPORT INFORMATION
  Report Type: Spontaneous
  Country: US (occurrence: US)
  Receive Date: 20170714
  Receipt Date: 20170714
  Transmission Date: 20171127
  Serious: No
  Sender: FDA-Public Use
  Company Number: US-ASTRAZENECA-2017SE72234

PATIENT
  Age: 65 Year
  Sex: Male
  Weight: 131.5 kg

DRUGS (4)
  1. HUMALOG [Concomitant]
     Active Substance: INSULIN LISPRO
     Indication: DIABETES MELLITUS
     Dosage: UNKNOWN
     Route: 065
     Dates: start: 1997
  2. PERCOCET [Concomitant]
     Active Substance: ACETAMINOPHEN\OXYCODONE HYDROCHLORIDE
  3. MOVANTIK [Suspect]
     Active Substance: NALOXEGOL OXALATE
     Indication: CONSTIPATION
     Route: 048
     Dates: start: 2016
  4. DULCOLAX NOS [Concomitant]
     Active Substance: BISACODYL OR DOCUSATE SODIUM

REACTIONS (9)
  - Abdominal distension [Unknown]
  - Dyspnoea [Unknown]
  - Insomnia [Unknown]
  - Intentional product misuse [Unknown]
  - Sleep apnoea syndrome [Unknown]
  - Dysuria [Unknown]
  - Asthenia [Unknown]
  - Fear of eating [Unknown]
  - Flatulence [Unknown]

NARRATIVE: CASE EVENT DATE: 2016
